FAERS Safety Report 13219559 (Version 1)
Quarter: 2017Q1

REPORT INFORMATION
  Report Type: Spontaneous
  Country: AR (occurrence: AR)
  Receive Date: 20170210
  Receipt Date: 20170210
  Transmission Date: 20170428
  Serious: Yes (Hospitalization)
  Sender: FDA-Public Use
  Company Number: AR-ROCHE-1888773

PATIENT
  Age: 4 Year
  Sex: Male

DRUGS (2)
  1. ZELBORAF [Suspect]
     Active Substance: VEMURAFENIB
     Route: 065
     Dates: start: 201512
  2. ZELBORAF [Suspect]
     Active Substance: VEMURAFENIB
     Indication: ASTROCYTOMA
     Route: 065
     Dates: start: 201511

REACTIONS (2)
  - Metabolic acidosis [Recovered/Resolved]
  - Off label use [Unknown]

NARRATIVE: CASE EVENT DATE: 201512
